FAERS Safety Report 14745972 (Version 1)
Quarter: 2018Q2

REPORT INFORMATION
  Report Type: Report from Study
  Country: GB (occurrence: US)
  Receive Date: 20180411
  Receipt Date: 20180411
  Transmission Date: 20180711
  Serious: Yes (Life-Threatening, Hospitalization)
  Sender: FDA-Public Use
  Company Number: GB-BAYER-2018-066347

PATIENT
  Sex: Female

DRUGS (3)
  1. AZITHROMYCIN ANHYDROUS. [Suspect]
     Active Substance: AZITHROMYCIN ANHYDROUS
  2. CEFOTAXIME [Concomitant]
     Active Substance: CEFOTAXIME SODIUM
  3. MOXIFLOXACIN HCL [Suspect]
     Active Substance: MOXIFLOXACIN

REACTIONS (14)
  - Angina pectoris [None]
  - Arrhythmia [None]
  - Blood iron decreased [None]
  - Vomiting [None]
  - Electrocardiogram QT prolonged [None]
  - Loss of consciousness [None]
  - Dizziness [None]
  - Pulmonary congestion [None]
  - Torsade de pointes [None]
  - Pain [None]
  - Transferrin saturation decreased [None]
  - Nausea [None]
  - Syncope [None]
  - Anaemia [None]
